FAERS Safety Report 7657146-4 (Version None)
Quarter: 2011Q3

REPORT INFORMATION
  Report Type: 
  Country: None (occurrence: None)
  Receive Date: 20110804
  Receipt Date: 20110523
  Transmission Date: 20111222
  Serious: No
  Sender: FDA-Public Use
  Company Number: US-GLAXOSMITHKLINE-A0928554A

PATIENT
  Age: 80 Year
  Sex: Female

DRUGS (5)
  1. VENTOLIN HFA [Suspect]
     Dosage: 1PUFF FOUR TIMES PER DAY
     Route: 055
  2. ANTI-CHOLESTEROL MEDICATION [Concomitant]
  3. BLOOD PRESSURE MEDICATION [Concomitant]
  4. VITAMIN TAB [Concomitant]
  5. ADVAIR DISKUS 100/50 [Suspect]
     Indication: ASTHMA
     Route: 055

REACTIONS (1)
  - ORAL CANDIDIASIS [None]
